FAERS Safety Report 21547710 (Version 1)
Quarter: 2022Q4

REPORT INFORMATION
  Report Type: Spontaneous
  Country: US (occurrence: US)
  Receive Date: 20221103
  Receipt Date: 20221103
  Transmission Date: 20230113
  Serious: No
  Sender: FDA-Public Use
  Company Number: US-ELI_LILLY_AND_COMPANY-US202211000352

PATIENT
  Sex: Female

DRUGS (2)
  1. ADCIRCA [Suspect]
     Active Substance: TADALAFIL
     Indication: Pulmonary arterial hypertension
     Dosage: 40 MG, DAILY
     Route: 048
     Dates: start: 20200721
  2. ADCIRCA [Suspect]
     Active Substance: TADALAFIL
     Indication: Pulmonary fibrosis

REACTIONS (3)
  - Hypoacusis [Unknown]
  - Vision blurred [Unknown]
  - Headache [Recovered/Resolved]
